FAERS Safety Report 12673538 (Version 1)
Quarter: 2016Q3

REPORT INFORMATION
  Report Type: Spontaneous
  Country: FR (occurrence: FR)
  Receive Date: 20160822
  Receipt Date: 20160822
  Transmission Date: 20161109
  Serious: Yes (Hospitalization)
  Sender: FDA-Public Use
  Company Number: FR-SA-2016SA147732

PATIENT
  Age: 60 Year
  Sex: Female
  Weight: 51 kg

DRUGS (6)
  1. TAXOTERE [Suspect]
     Active Substance: DOCETAXEL
     Indication: HYPERCALCAEMIA OF MALIGNANCY
     Dosage: 50 MG / M2 (83.5 MG.)
     Route: 042
     Dates: start: 20150814, end: 20150814
  2. TAXOTERE [Suspect]
     Active Substance: DOCETAXEL
     Indication: HYPERCALCAEMIA OF MALIGNANCY
     Route: 042
     Dates: start: 20150901, end: 20150901
  3. TAXOTERE [Suspect]
     Active Substance: DOCETAXEL
     Indication: HYPERCALCAEMIA OF MALIGNANCY
     Route: 042
     Dates: start: 20150915, end: 20150915
  4. GEMZAR [Suspect]
     Active Substance: GEMCITABINE HYDROCHLORIDE
     Indication: HYPERCALCAEMIA OF MALIGNANCY
     Dosage: 1000 MG / M 2 (1680 MG)
     Route: 042
     Dates: start: 20150814, end: 20150814
  5. GEMZAR [Suspect]
     Active Substance: GEMCITABINE HYDROCHLORIDE
     Indication: HYPERCALCAEMIA OF MALIGNANCY
     Route: 042
     Dates: start: 20150915, end: 20150915
  6. GEMZAR [Suspect]
     Active Substance: GEMCITABINE HYDROCHLORIDE
     Indication: HYPERCALCAEMIA OF MALIGNANCY
     Route: 042
     Dates: start: 20150901, end: 20150901

REACTIONS (3)
  - Alanine aminotransferase increased [Recovered/Resolved]
  - Hepatocellular injury [Recovered/Resolved]
  - Aspartate aminotransferase increased [Recovered/Resolved]

NARRATIVE: CASE EVENT DATE: 20150818
